FAERS Safety Report 11552340 (Version 4)
Quarter: 2016Q2

REPORT INFORMATION
  Report Type: Report from Study
  Country: US (occurrence: US)
  Receive Date: 20150925
  Receipt Date: 20160412
  Transmission Date: 20160815
  Serious: Yes (Other)
  Sender: FDA-Public Use
  Company Number: US-AMGEN-USASL2015098411

PATIENT
  Age: 65 Year
  Sex: Female
  Weight: 51.25 kg

DRUGS (1)
  1. ENBREL [Suspect]
     Active Substance: ETANERCEPT
     Indication: RHEUMATOID ARTHRITIS
     Dosage: 25 MG, TWICE WEEKLY
     Route: 065

REACTIONS (3)
  - Depression [Unknown]
  - Frequent bowel movements [Unknown]
  - Anxiety [Unknown]
